FAERS Safety Report 5441102-0 (Version None)
Quarter: 2007Q3

REPORT INFORMATION
  Report Type: 
  Country: None (occurrence: None)
  Receive Date: 20070831
  Receipt Date: 20070821
  Transmission Date: 20080115
  Serious: Yes (Hospitalization, Other)
  Sender: FDA-Public Use
  Company Number: BR-PFIZER INC-2007065302

PATIENT
  Age: 28 Year
  Sex: Female

DRUGS (10)
  1. EXUBERA [Suspect]
     Indication: TYPE 1 DIABETES MELLITUS
     Route: 055
  2. PIROXICAM [Suspect]
  3. INSULIN GLARGINE [Concomitant]
  4. INSULIN LISPRO [Concomitant]
  5. LOSARTAN POTASSIUM [Concomitant]
  6. ENALAPRIL [Concomitant]
  7. SYNTHROID [Concomitant]
  8. CORTICOSTEROID NOS [Concomitant]
  9. DRUG, UNSPECIFIED [Concomitant]
  10. GABAPENTIN [Concomitant]

REACTIONS (2)
  - NEPHROTIC SYNDROME [None]
  - OEDEMA PERIPHERAL [None]
